FAERS Safety Report 19923736 (Version 1)
Quarter: 2021Q4

REPORT INFORMATION
  Report Type: Spontaneous
  Country: US (occurrence: US)
  Receive Date: 20211006
  Receipt Date: 20211006
  Transmission Date: 20220303
  Serious: No
  Sender: FDA-Public Use
  Company Number: US-PFIZER INC-202101288042

PATIENT
  Age: 38 Year
  Sex: Female
  Weight: 73.29 kg

DRUGS (9)
  1. XELJANZ XR [Suspect]
     Active Substance: TOFACITINIB CITRATE
     Indication: Rheumatoid arthritis
     Dosage: 11 MG, DAILY
     Route: 048
     Dates: start: 20190525
  2. NUVARING [Concomitant]
     Active Substance: ETHINYL ESTRADIOL\ETONOGESTREL
     Dosage: UNK (VAGINAL RING)
     Route: 067
  3. MAG SR [Concomitant]
     Dosage: UNK
  4. CALCIUM + D3 [CALCIUM CARBONATE;COLECALCIFEROL] [Concomitant]
     Dosage: UNK (600 MG-500 TABLET ER)
  5. NAPROXEN [Concomitant]
     Active Substance: NAPROXEN
     Dosage: UNK
  6. GINKGO [Concomitant]
     Active Substance: GINKGO
     Dosage: UNK
  7. FISH OIL [Concomitant]
     Active Substance: FISH OIL
     Dosage: UNK (100-150 MG CAPSULE)
  8. VITAMIN B COMPLEX [Concomitant]
     Active Substance: CYANOCOBALAMIN\DEXPANTHENOL\NIACINAMIDE\PYRIDOXINE HYDROCHLORIDE\RIBOFLAVIN 5^-PHOSPHATE SODIUM\THIA
     Dosage: UNK (VITAMIN B-100 COMPLEX 0.4 MG TABLET)
  9. VITAMINS [Concomitant]
     Active Substance: VITAMINS

REACTIONS (2)
  - Condition aggravated [Recovered/Resolved]
  - Stress [Recovered/Resolved]

NARRATIVE: CASE EVENT DATE: 20210801
